FAERS Safety Report 7623154-2 (Version None)
Quarter: 2011Q3

REPORT INFORMATION
  Report Type: 
  Country: None (occurrence: None)
  Receive Date: 20110720
  Receipt Date: 20110708
  Transmission Date: 20111222
  Serious: Yes (Hospitalization)
  Sender: FDA-Public Use
  Company Number: PHHY2011FR61500

PATIENT
  Sex: Male

DRUGS (6)
  1. NEXIUM [Concomitant]
     Indication: GASTRIC DISORDER
     Dosage: 1 DF, QD
     Route: 048
  2. APROVEL [Concomitant]
     Indication: HYPERTENSION
     Dosage: 1 DF, QD
     Route: 048
  3. TEGRETOL [Suspect]
     Indication: EPILEPSY
     Dosage: 600 MG, DAILY
     Route: 048
     Dates: start: 20100907, end: 20101109
  4. ASPIRIN [Concomitant]
     Indication: ATRIAL FIBRILLATION
     Dosage: 1 DF, QD
     Route: 048
     Dates: start: 20060401
  5. OMEXEL LP [Concomitant]
     Indication: BENIGN PROSTATIC HYPERPLASIA
     Dosage: 1 DF, QD
  6. DEPAKENE [Concomitant]
     Indication: EPILEPSY
     Dosage: 2 DF, QD
     Route: 048
     Dates: start: 20100905

REACTIONS (4)
  - CHOLESTASIS [None]
  - COUGH [None]
  - EOSINOPHILIA [None]
  - ECZEMA [None]
